FAERS Safety Report 6232747-9 (Version None)
Quarter: 2009Q2

REPORT INFORMATION
  Report Type: 
  Country: None (occurrence: None)
  Receive Date: 20090617
  Receipt Date: 20090605
  Transmission Date: 20091009
  Serious: Yes (Other)
  Sender: FDA-Public Use
  Company Number: US-TYCO HEALTHCARE/MALLINCKRODT-T200901162

PATIENT

DRUGS (1)
  1. OPTIRAY 350 [Suspect]
     Indication: CATHETERISATION CARDIAC
     Dosage: UNK

REACTIONS (1)
  - THROMBOSIS [None]
